FAERS Safety Report 5542943-1 (Version None)
Quarter: 2007Q4

REPORT INFORMATION
  Report Type: 
  Country: None (occurrence: None)
  Receive Date: 20071210
  Receipt Date: 20071128
  Transmission Date: 20080405
  Serious: Yes (Hospitalization, Other)
  Sender: FDA-Public Use
  Company Number: DE-PFIZER INC-2007100118

PATIENT
  Age: 47 Year
  Sex: Female

DRUGS (1)
  1. NEURONTIN [Suspect]
     Indication: PAIN
     Route: 048

REACTIONS (4)
  - DEMENTIA [None]
  - EPILEPSY [None]
  - GAIT DISTURBANCE [None]
  - SYNCOPE [None]
